FAERS Safety Report 19992560 (Version 1)
Quarter: 2021Q4

REPORT INFORMATION
  Report Type: Report from Study
  Country: None (occurrence: US)
  Receive Date: 20211025
  Receipt Date: 20211025
  Transmission Date: 20220303
  Serious: Yes (Other)
  Sender: FDA-Public Use
  Company Number: US-ABBVIE-21K-163-4131962-00

PATIENT
  Sex: Female

DRUGS (1)
  1. ORILISSA [Suspect]
     Active Substance: ELAGOLIX SODIUM
     Indication: Product used for unknown indication
     Dosage: 6 MONTHS OF BID
     Route: 048
     Dates: start: 2020, end: 2020

REACTIONS (6)
  - Loss of consciousness [Recovered/Resolved]
  - Pain [Recovered/Resolved]
  - Breast tenderness [Recovered/Resolved]
  - Dysmenorrhoea [Recovered/Resolved]
  - Heavy menstrual bleeding [Recovered/Resolved]
  - Diarrhoea [Recovered/Resolved]
